FAERS Safety Report 4623692-0 (Version None)
Quarter: 2005Q1

REPORT INFORMATION
  Report Type: 
  Country: None (occurrence: None)
  Receive Date: 20050329
  Receipt Date: 20050316
  Transmission Date: 20050727
  Serious: Yes (Life-Threatening, Hospitalization)
  Sender: FDA-Public Use
  Company Number: 2004225092JP

PATIENT
  Age: 13 Year
  Sex: Male
  Weight: 51.0297 kg

DRUGS (8)
  1. GENOTROPIN [Suspect]
     Indication: BODY HEIGHT BELOW NORMAL
     Dosage: 1.4 MG (1.4 MG, QD) 1.6 MG (1.6 MG, QD) SUBCUTANEOUS
     Route: 058
     Dates: start: 20040401, end: 20040709
  2. GENOTROPIN [Suspect]
     Indication: BODY HEIGHT BELOW NORMAL
     Dosage: 1.4 MG (1.4 MG, QD) 1.6 MG (1.6 MG, QD) SUBCUTANEOUS
     Route: 058
     Dates: start: 20011004
  3. INSULIN [Concomitant]
  4. SULPIRIDE [Concomitant]
  5. LORAZEPAM [Concomitant]
  6. POTASSIUM CHLORIDE [Concomitant]
  7. CALCITRIOL [Concomitant]
  8. CALCIUM CARBONATE [Concomitant]

REACTIONS (15)
  - ABDOMINAL PAIN [None]
  - ANOREXIA [None]
  - BLOOD GLUCOSE INCREASED [None]
  - CENTRAL PONTINE MYELINOLYSIS [None]
  - CLONIC CONVULSION [None]
  - DEPRESSION [None]
  - DIABETES MELLITUS NON-INSULIN-DEPENDENT [None]
  - DIARRHOEA [None]
  - GLUCOSE TOLERANCE IMPAIRED [None]
  - GLYCOSYLATED HAEMOGLOBIN INCREASED [None]
  - HYPEROSMOLAR STATE [None]
  - NAUSEA [None]
  - PSYCHOSOMATIC DISEASE [None]
  - SOMNOLENCE [None]
  - WEIGHT DECREASED [None]
